FAERS Safety Report 7395048-1 (Version None)
Quarter: 2011Q2

REPORT INFORMATION
  Report Type: 
  Country: None (occurrence: None)
  Receive Date: 20110405
  Receipt Date: 20110323
  Transmission Date: 20111010
  Serious: Yes (Other)
  Sender: FDA-Public Use
  Company Number: US-CELGENEUS-163-21880-11012676

PATIENT
  Sex: Female
  Weight: 62.198 kg

DRUGS (10)
  1. ASPIRIN [Concomitant]
     Dosage: 81
     Route: 065
  2. PANTOPRAZOLE [Concomitant]
     Route: 065
  3. MAGNESIUM OXIDE [Concomitant]
     Dosage: 400
     Route: 065
  4. FUROSEMIDE [Concomitant]
     Dosage: 40
     Route: 065
  5. REVLIMID [Suspect]
     Dosage: 5 MILLIGRAM
     Route: 048
  6. CARVEDILOL [Concomitant]
     Route: 065
  7. VITAMIN D [Concomitant]
     Route: 065
  8. KLOR-CON [Concomitant]
     Dosage: 20 MILLIEQUIVALENTS
     Route: 065
  9. REVLIMID [Suspect]
     Indication: MULTIPLE MYELOMA
     Dosage: 25 MILLIGRAM
     Route: 048
     Dates: start: 20100801
  10. CALCIUM D [Concomitant]
     Route: 065

REACTIONS (2)
  - FALL [None]
  - UPPER LIMB FRACTURE [None]
